FAERS Safety Report 8970814 (Version 1)
Quarter: 2012Q4

REPORT INFORMATION
  Report Type: 
  Country: US (occurrence: US)
  Receive Date: 20121218
  Receipt Date: 20121218
  Transmission Date: 20130627
  Serious: No
  Sender: FDA-Public Use
  Company Number: US-PFIZER INC-2004057280

PATIENT
  Age: 57 Year
  Sex: Male

DRUGS (3)
  1. MOTRIN IB [Suspect]
     Indication: SHOULDER PAIN
     Dosage: 400 mg, daily, as needed
     Route: 048
     Dates: end: 200402
  2. MOTRIN IB [Suspect]
     Indication: PAIN NOS
     Dosage: 400 mg, 3x/day
     Route: 048
     Dates: start: 200402
  3. ZOCOR [Concomitant]
     Dosage: UNK
     Dates: start: 1984

REACTIONS (3)
  - Psychomotor hyperactivity [Unknown]
  - Irritability [Unknown]
  - Insomnia [Unknown]
